FAERS Safety Report 8388654-9 (Version None)
Quarter: 2012Q2

REPORT INFORMATION
  Report Type: 
  Country: None (occurrence: None)
  Receive Date: 20120525
  Receipt Date: 20120517
  Transmission Date: 20120825
  Serious: Yes (Hospitalization, Other)
  Sender: FDA-Public Use
  Company Number: US-MERCK-1109USA01760

PATIENT
  Age: 77 Year
  Sex: Female

DRUGS (4)
  1. VITAMINS (UNSPECIFIED) [Concomitant]
     Route: 065
     Dates: start: 19900101
  2. FOSAMAX [Suspect]
     Route: 048
     Dates: start: 20010101, end: 20080101
  3. FOSAMAX [Suspect]
     Indication: OSTEOPENIA
     Route: 048
     Dates: start: 19960101, end: 20010101
  4. FOSAMAX [Suspect]
     Route: 048
     Dates: start: 20080101, end: 20100101

REACTIONS (3)
  - LOW TURNOVER OSTEOPATHY [None]
  - HYPERTENSION [None]
  - FEMUR FRACTURE [None]
